FAERS Safety Report 16798484 (Version 2)
Quarter: 2019Q4

REPORT INFORMATION
  Report Type: Spontaneous
  Country: US (occurrence: US)
  Receive Date: 20190912
  Receipt Date: 20191003
  Transmission Date: 20200122
  Serious: Yes (Other)
  Sender: FDA-Public Use
  Company Number: US-TORRENT-00009185

PATIENT
  Age: 59 Year
  Sex: Male

DRUGS (1)
  1. OLMESARTAN [Suspect]
     Active Substance: OLMESARTAN
     Indication: HYPERTENSION
     Dosage: 3 YEARS

REACTIONS (3)
  - Sprue-like enteropathy [Recovered/Resolved]
  - Liver injury [Recovered/Resolved]
  - Malabsorption [Recovered/Resolved]
